FAERS Safety Report 19058569 (Version 1)
Quarter: 2021Q1

REPORT INFORMATION
  Report Type: Spontaneous
  Country: US (occurrence: US)
  Receive Date: 20210325
  Receipt Date: 20210325
  Transmission Date: 20210420
  Serious: No
  Sender: FDA-Public Use
  Company Number: US-SA-2021SA100324

PATIENT
  Age: 15 Year
  Sex: Male

DRUGS (4)
  1. DUPIXENT [Suspect]
     Active Substance: DUPILUMAB
     Indication: DERMATITIS ATOPIC
     Dosage: 200 MG QOW
     Route: 058
     Dates: start: 20210203
  2. HYDROCORT [HYDROCORTISONE;NEOMYCIN SULFATE] [Concomitant]
  3. MOMETASONE [Concomitant]
     Active Substance: MOMETASONE
  4. FLUOROMETHOLONE. [Concomitant]
     Active Substance: FLUOROMETHOLONE

REACTIONS (1)
  - Conjunctivitis [Not Recovered/Not Resolved]

NARRATIVE: CASE EVENT DATE: 2021
